FAERS Safety Report 5289816-X (Version None)
Quarter: 2007Q2

REPORT INFORMATION
  Report Type: 
  Country: None (occurrence: None)
  Receive Date: 20070406
  Receipt Date: 20070330
  Transmission Date: 20071010
  Serious: Yes (Death)
  Sender: FDA-Public Use
  Company Number: TH-BOEHRINGER INGELHEIM GMBH, GERMANY-2007-DE-01906GD

PATIENT
  Age: 18 Day

DRUGS (3)
  1. NEVIRAPINE [Suspect]
     Route: 015
  2. ZIDOVUDINE [Suspect]
     Route: 015
  3. LAMIVUDINE [Suspect]
     Route: 015

REACTIONS (1)
  - PNEUMONIA ASPIRATION [None]
